FAERS Safety Report 22315271 (Version 1)
Quarter: 2023Q2

REPORT INFORMATION
  Report Type: Spontaneous
  Country: ZA (occurrence: ZA)
  Receive Date: 20230512
  Receipt Date: 20230512
  Transmission Date: 20230721
  Serious: Yes (Other)
  Sender: FDA-Public Use
  Company Number: ZA-PFIZER INC-PV202300083027

PATIENT
  Age: 30 Year
  Sex: Male

DRUGS (1)
  1. XELJANZ [Suspect]
     Active Substance: TOFACITINIB CITRATE
     Indication: Colitis ulcerative
     Dosage: 5 MG, 2X/DAY

REACTIONS (4)
  - Cytomegalovirus infection [Unknown]
  - Clostridium difficile infection [Unknown]
  - Haematochezia [Unknown]
  - Frequent bowel movements [Unknown]
